FAERS Safety Report 16161396 (Version 1)
Quarter: 2019Q2

REPORT INFORMATION
  Report Type: Spontaneous
  Country: CA (occurrence: CA)
  Receive Date: 20190405
  Receipt Date: 20190405
  Transmission Date: 20190711
  Serious: Yes (Disabling)
  Sender: FDA-Public Use
  Company Number: CA-CELLTRION INC.-2019CA018469

PATIENT

DRUGS (13)
  1. PLAVIX [Concomitant]
     Active Substance: CLOPIDOGREL BISULFATE
     Indication: TRANSIENT ISCHAEMIC ATTACK
     Dosage: UNK
  2. PENTASA [Concomitant]
     Active Substance: MESALAMINE
     Indication: CROHN^S DISEASE
     Dosage: UNK
  3. CALCIUM + VITAMIN D [CALCIUM;COLECALCIFEROL] [Concomitant]
     Indication: CROHN^S DISEASE
     Dosage: UNK
     Route: 048
  4. INFLECTRA [Suspect]
     Active Substance: INFLIXIMAB-DYYB
     Dosage: 400 MG, WEEK 0, 2, 6, THEN Q(EVERY) 8 WEEKS
     Route: 042
     Dates: start: 20190306
  5. ACETAMINOPHEN. [Concomitant]
     Active Substance: ACETAMINOPHEN
     Indication: PREMEDICATION
     Dosage: 650 MG
     Route: 048
     Dates: start: 20190207, end: 20190207
  6. DILAUDID [Concomitant]
     Active Substance: HYDROMORPHONE HYDROCHLORIDE
     Dosage: UNK
  7. INFLECTRA [Suspect]
     Active Substance: INFLIXIMAB-DYYB
     Dosage: 400 MG, WEEK 0, 2, 6, THEN Q(EVERY) 8 WEEKS
     Route: 042
     Dates: start: 20190207
  8. PANTOLOC [PANTOPRAZOLE] [Concomitant]
     Active Substance: PANTOPRAZOLE SODIUM
     Indication: GASTROOESOPHAGEAL REFLUX DISEASE
     Dosage: UNK
     Route: 048
  9. SYNTHROID [Concomitant]
     Active Substance: LEVOTHYROXINE SODIUM
     Indication: HYPOTHYROIDISM
     Dosage: UNK
     Route: 048
  10. INFLECTRA [Suspect]
     Active Substance: INFLIXIMAB-DYYB
     Indication: CROHN^S DISEASE
     Dosage: 400 MG, WEEK 0, 2, 6, THEN Q(EVERY) 8 WEEKS
     Route: 042
     Dates: start: 20190123
  11. PREDNISONE. [Concomitant]
     Active Substance: PREDNISONE
     Indication: CROHN^S DISEASE
     Dosage: 10 MG, DAILY, THEN REDUCED TO 7.5 MG, DAILY
     Route: 048
  12. VITAMIN B12 [Concomitant]
     Active Substance: CYANOCOBALAMIN
     Dosage: UNK
  13. IMURAN [Concomitant]
     Active Substance: AZATHIOPRINE
     Dosage: UNK

REACTIONS (19)
  - Coordination abnormal [Recovered/Resolved]
  - Limb discomfort [Not Recovered/Not Resolved]
  - Muscle spasms [Unknown]
  - Diarrhoea [Recovered/Resolved]
  - Fatigue [Unknown]
  - Hypoaesthesia [Not Recovered/Not Resolved]
  - Blood pressure fluctuation [Unknown]
  - Hot flush [Unknown]
  - Aspartate aminotransferase increased [Unknown]
  - Alanine aminotransferase increased [Unknown]
  - Arthralgia [Unknown]
  - Rhinorrhoea [Unknown]
  - Dyspnoea [Not Recovered/Not Resolved]
  - Tremor [Recovered/Resolved]
  - Product use issue [Unknown]
  - Headache [Not Recovered/Not Resolved]
  - Insomnia [Not Recovered/Not Resolved]
  - Dizziness [Not Recovered/Not Resolved]
  - Restlessness [Unknown]

NARRATIVE: CASE EVENT DATE: 20190123
